FAERS Safety Report 7144048 (Version 3)
Quarter: 2013Q3

REPORT INFORMATION
  Report Type: Spontaneous
  Country: FR (occurrence: FR)
  Receive Date: 20091008
  Receipt Date: 20130923
  Transmission Date: 20140515
  Serious: Yes (Hospitalization, Other)
  Sender: FDA-Public Use
  Company Number: PHHY2009FR41737

PATIENT
  Age: 76 Year
  Sex: Female
  Weight: 91 kg

DRUGS (16)
  1. ACLASTA [Suspect]
     Indication: OSTEOPOROSIS POSTMENOPAUSAL
     Dosage: 5 MG, UNK
     Route: 042
     Dates: start: 20090915
  2. APROVEL [Concomitant]
     Indication: HYPERTENSION
     Dosage: 1 DF/DAY
  3. AMLOR [Concomitant]
     Indication: HYPERTENSION
     Dosage: 1 DF/DAY
  4. TARDYFERON B(9) [Concomitant]
     Indication: ANAEMIA
     Dosage: 2 DF/DAY
  5. CRESTOR [Concomitant]
     Indication: HYPERCHOLESTEROLAEMIA
     Dosage: 1 DF/DAY
  6. ASPEGIC [Concomitant]
     Indication: ISCHAEMIC CARDIOMYOPATHY
     Dosage: 1 DF/DAY
  7. SECTRAL [Concomitant]
     Indication: HYPERTENSION
     Dosage: 1 DF/DAY
  8. LYRICA [Concomitant]
     Dosage: 2 DF/DAY
  9. GLUCOR [Concomitant]
     Indication: TYPE 2 DIABETES MELLITUS
     Dosage: 3 DF/DAY
  10. SERESTA [Concomitant]
     Indication: ANXIETY
     Dosage: 1 DF/DAY
  11. DITROPAN [Concomitant]
     Indication: BLISTER
     Dosage: 2 DF/DAY
  12. EFFEXOR [Concomitant]
     Indication: DEPRESSION
     Dosage: 1 DF/DAY
  13. OROCAL D3 [Concomitant]
     Indication: OSTEOPOROSIS
     Dosage: 1 DF/DAY
  14. UVEDOSE [Concomitant]
     Indication: VITAMIN D DEFICIENCY
     Dosage: 1 DF/MONTH
  15. AMAREL [Concomitant]
     Indication: TYPE 2 DIABETES MELLITUS
     Dosage: 2 DF/DAY
  16. CLARADOL CAFFEINE [Concomitant]
     Indication: PAIN
     Dosage: UNK UKN, UNK

REACTIONS (9)
  - Lung disorder [Recovered/Resolved]
  - Renal failure acute [Recovering/Resolving]
  - Hypertensive nephropathy [Recovered/Resolved]
  - Diabetic nephropathy [Recovered/Resolved]
  - Urinary retention [Recovered/Resolved]
  - Influenza like illness [Unknown]
  - Pyrexia [Recovered/Resolved]
  - Myalgia [Recovered/Resolved]
  - Haemoglobin decreased [Unknown]
